FAERS Safety Report 10054030 (Version 1)
Quarter: 2014Q2

REPORT INFORMATION
  Report Type: Spontaneous
  Country: US (occurrence: US)
  Receive Date: 20140402
  Receipt Date: 20140402
  Transmission Date: 20141212
  Serious: No
  Sender: FDA-Public Use
  Company Number: US-AMGEN-USASP2014017695

PATIENT
  Age: 58 Year
  Sex: Female

DRUGS (2)
  1. ENBREL [Suspect]
     Indication: PSORIASIS
     Dosage: 50 MG, QWK
     Route: 065
     Dates: start: 20140228, end: 20140307
  2. ENBREL [Suspect]
     Indication: PSORIATIC ARTHROPATHY

REACTIONS (3)
  - Erythema [Not Recovered/Not Resolved]
  - Pruritus [Not Recovered/Not Resolved]
  - Local swelling [Not Recovered/Not Resolved]
